FAERS Safety Report 25676768 (Version 2)
Quarter: 2025Q3

REPORT INFORMATION
  Report Type: Report from Study
  Country: US (occurrence: US)
  Receive Date: 20250813
  Receipt Date: 20250909
  Transmission Date: 20251021
  Serious: Yes (Other)
  Sender: CALLIDITAS THERAPEUTICS AB
  Company Number: US-Calliditas-2025CAL01875

PATIENT
  Age: 74 Year
  Sex: Male

DRUGS (17)
  1. TARPEYO [Suspect]
     Active Substance: BUDESONIDE
     Indication: IgA nephropathy
     Route: 048
     Dates: start: 20250607
  2. FLOMAX [Concomitant]
     Active Substance: TAMSULOSIN HYDROCHLORIDE
  3. JARDIANCE [Concomitant]
     Active Substance: EMPAGLIFLOZIN
  4. LISINOPRIL [Concomitant]
     Active Substance: LISINOPRIL
  5. LOKELMA [SODIUM ZIRCONIUM CYCLOSILICATE] [Concomitant]
  6. MIRALAX [Concomitant]
     Active Substance: POLYETHYLENE GLYCOL 3350
  7. MULTIVITAMINS WITH FLUORIDE [ASCORBIC ACID;CYANOCOBALAMIN;ERGOCALCI... [Concomitant]
  8. ASPIRIN [Concomitant]
     Active Substance: ASPIRIN
  9. ALLOPURINOL [Concomitant]
     Active Substance: ALLOPURINOL
  10. ATORVASTATIN [Concomitant]
     Active Substance: ATORVASTATIN
  11. CIALIS [Concomitant]
     Active Substance: TADALAFIL
  12. NITROGLYCERIN [Concomitant]
     Active Substance: NITROGLYCERIN
  13. PIOGLITAZONE [Concomitant]
     Active Substance: PIOGLITAZONE
  14. SENNA LEAF [Concomitant]
     Active Substance: SENNA LEAF
  15. THIAMINE [Concomitant]
     Active Substance: THIAMINE
  16. TRAZODONE [Concomitant]
     Active Substance: TRAZODONE HYDROCHLORIDE
  17. VITAMIN D3 [Concomitant]
     Active Substance: CHOLECALCIFEROL

REACTIONS (8)
  - Joint swelling [Recovered/Resolved]
  - Peripheral swelling [Recovered/Resolved]
  - Colonoscopy [Recovered/Resolved]
  - Blood pressure increased [Recovered/Resolved]
  - Hypokalaemia [Not Recovered/Not Resolved]
  - Muscle spasms [Recovering/Resolving]
  - Weight increased [Not Recovered/Not Resolved]
  - Abdominal distension [Not Recovered/Not Resolved]

NARRATIVE: CASE EVENT DATE: 20250621
